FAERS Safety Report 10140951 (Version 2)
Quarter: 2014Q2

REPORT INFORMATION
  Report Type: Spontaneous
  Country: US (occurrence: US)
  Receive Date: 20140429
  Receipt Date: 20140616
  Transmission Date: 20141212
  Serious: Yes (Other)
  Sender: FDA-Public Use
  Company Number: US-TEVA-478527USA

PATIENT
  Sex: Female

DRUGS (1)
  1. TRAZODONE [Suspect]

REACTIONS (1)
  - Choking [Unknown]
